FAERS Safety Report 6710669-4 (Version None)
Quarter: 2010Q2

REPORT INFORMATION
  Report Type: 
  Country: None (occurrence: None)
  Receive Date: 20100504
  Receipt Date: 20100504
  Transmission Date: 20101027
  Serious: Yes (Disabling)
  Sender: FDA-Public Use
  Company Number: None

PATIENT
  Age: 54 Year
  Sex: Female
  Weight: 94 kg

DRUGS (1)
  1. PALIPERIDONE 156 MG/ML [Suspect]
     Indication: SCHIZOAFFECTIVE DISORDER
     Dosage: 156 MG/ML Q28 DAYS IM
     Route: 030
     Dates: start: 20100421, end: 20100421

REACTIONS (1)
  - INJECTION SITE MASS [None]
